FAERS Safety Report 19809910 (Version 1)
Quarter: 2021Q3

REPORT INFORMATION
  Report Type: Spontaneous
  Country: US (occurrence: US)
  Receive Date: 20210908
  Receipt Date: 20210908
  Transmission Date: 20211014
  Serious: No
  Sender: FDA-Public Use
  Company Number: US-ROCHE-2858264

PATIENT
  Age: 34 Year
  Sex: Female
  Weight: 91.25 kg

DRUGS (12)
  1. ENSPRYNG [Suspect]
     Active Substance: SATRALIZUMAB-MWGE
     Route: 058
     Dates: start: 2021
  2. ENSPRYNG [Suspect]
     Active Substance: SATRALIZUMAB-MWGE
  3. ENSPRYNG [Suspect]
     Active Substance: SATRALIZUMAB-MWGE
  4. ENSPRYNG [Suspect]
     Active Substance: SATRALIZUMAB-MWGE
  5. ENSPRYNG [Suspect]
     Active Substance: SATRALIZUMAB-MWGE
  6. ENSPRYNG [Suspect]
     Active Substance: SATRALIZUMAB-MWGE
     Indication: NEUROMYELITIS OPTICA SPECTRUM DISORDER
     Route: 058
     Dates: start: 202103
  7. ENSPRYNG [Suspect]
     Active Substance: SATRALIZUMAB-MWGE
  8. ENSPRYNG [Suspect]
     Active Substance: SATRALIZUMAB-MWGE
  9. ENSPRYNG [Suspect]
     Active Substance: SATRALIZUMAB-MWGE
     Route: 058
  10. ENSPRYNG [Suspect]
     Active Substance: SATRALIZUMAB-MWGE
  11. ENSPRYNG [Suspect]
     Active Substance: SATRALIZUMAB-MWGE
  12. ENSPRYNG [Suspect]
     Active Substance: SATRALIZUMAB-MWGE

REACTIONS (2)
  - Pharyngitis streptococcal [Unknown]
  - Sinusitis [Unknown]

NARRATIVE: CASE EVENT DATE: 20210624
